FAERS Safety Report 16976293 (Version 1)
Quarter: 2019Q4

REPORT INFORMATION
  Report Type: Spontaneous
  Country: US (occurrence: US)
  Receive Date: 20191030
  Receipt Date: 20191030
  Transmission Date: 20200122
  Serious: Yes (Other)
  Sender: FDA-Public Use
  Company Number: US-BAYER-2019-196322

PATIENT
  Sex: Male
  Weight: 88.08 kg

DRUGS (7)
  1. DEXAMETHASONE. [Concomitant]
     Active Substance: DEXAMETHASONE
     Indication: PLASMA CELL MYELOMA
  2. CYCLOPHOSPHAMIDE. [Concomitant]
     Active Substance: CYCLOPHOSPHAMIDE
     Indication: PLASMA CELL MYELOMA
  3. CORAGINA [Concomitant]
     Indication: CARDIAC DISORDER
  4. XARELTO [Suspect]
     Active Substance: RIVAROXABAN
     Indication: THROMBOSIS PROPHYLAXIS
     Dosage: 15 MG, QD
     Route: 048
  5. BAYER LOW DOSE [Suspect]
     Active Substance: ASPIRIN
     Indication: PRODUCT USED FOR UNKNOWN INDICATION
     Dosage: 81 MG, UNK
  6. XGEVA [Concomitant]
     Active Substance: DENOSUMAB
     Indication: BONE DISORDER
  7. NINLARO [Concomitant]
     Active Substance: IXAZOMIB CITRATE
     Indication: PLASMA CELL MYELOMA

REACTIONS (4)
  - Syncope [Unknown]
  - Plasma cell myeloma [Not Recovered/Not Resolved]
  - Epistaxis [Recovered/Resolved]
  - Benign prostatic hyperplasia [Unknown]

NARRATIVE: CASE EVENT DATE: 2018
